FAERS Safety Report 6994455-6 (Version None)
Quarter: 2010Q3

REPORT INFORMATION
  Report Type: 
  Country: None (occurrence: None)
  Receive Date: 20100917
  Receipt Date: 20100907
  Transmission Date: 20110219
  Serious: Yes (Hospitalization)
  Sender: FDA-Public Use
  Company Number: NL-JNJFOC-20100902290

PATIENT
  Sex: Female
  Weight: 94 kg

DRUGS (12)
  1. CAELYX [Suspect]
     Indication: BREAST CANCER METASTATIC
     Route: 042
  2. MOVICOLON [Concomitant]
     Route: 065
  3. ACETAMINOPHEN [Concomitant]
     Route: 065
  4. PREDNISONE [Concomitant]
     Route: 065
  5. CALCICHEW [Concomitant]
     Dosage: 500/400 DOSE
     Route: 065
  6. TEMAZEPAM [Concomitant]
     Route: 065
  7. INDAPAMIDE [Concomitant]
     Route: 065
  8. TOLBUTAMIDE [Concomitant]
     Route: 065
  9. ACENOCOUMAROL [Concomitant]
     Route: 065
  10. AMLODIPINE [Concomitant]
     Route: 065
  11. BETAHISTINE [Concomitant]
     Route: 065
  12. DIOVAN [Concomitant]
     Route: 065

REACTIONS (6)
  - BREAST CANCER [None]
  - DYSPNOEA [None]
  - GENERAL PHYSICAL HEALTH DETERIORATION [None]
  - MALAISE [None]
  - MALIGNANT NEOPLASM PROGRESSION [None]
  - NAUSEA [None]
